FAERS Safety Report 8602547-0 (Version None)
Quarter: 2012Q3

REPORT INFORMATION
  Report Type: 
  Country: None (occurrence: None)
  Receive Date: 20120817
  Receipt Date: 20120810
  Transmission Date: 20120928
  Serious: Yes (Other)
  Sender: FDA-Public Use
  Company Number: PHEH2011US03143

PATIENT
  Sex: Female
  Weight: 72.562 kg

DRUGS (2)
  1. GILENYA [Suspect]
     Indication: RELAPSING-REMITTING MULTIPLE SCLEROSIS
     Dosage: 0.5 MG, QD
     Route: 048
     Dates: start: 20110816
  2. PREDNISONE TAB [Concomitant]
     Indication: MULTIPLE SCLEROSIS RELAPSE
     Dosage: UNK UKN, UNK
     Dates: start: 20110817

REACTIONS (15)
  - CD4 LYMPHOCYTES DECREASED [None]
  - B-LYMPHOCYTE COUNT DECREASED [None]
  - INFECTION [None]
  - LYMPHOCYTE COUNT DECREASED [None]
  - DIARRHOEA [None]
  - BLOOD IMMUNOGLOBULIN G DECREASED [None]
  - BALANCE DISORDER [None]
  - BLOOD IMMUNOGLOBULIN E DECREASED [None]
  - NATURAL KILLER CELL COUNT INCREASED [None]
  - BACK PAIN [None]
  - EYE MOVEMENT DISORDER [None]
  - IMMUNOSUPPRESSION [None]
  - T-LYMPHOCYTE COUNT DECREASED [None]
  - WHITE BLOOD CELL COUNT DECREASED [None]
  - MULTIPLE SCLEROSIS RELAPSE [None]
